FAERS Safety Report 19350180 (Version 1)
Quarter: 2021Q2

REPORT INFORMATION
  Report Type: Spontaneous
  Country: US (occurrence: US)
  Receive Date: 20210601
  Receipt Date: 20210601
  Transmission Date: 20210717
  Serious: No
  Sender: FDA-Public Use
  Company Number: None

PATIENT
  Age: 72 Year
  Sex: Male

DRUGS (1)
  1. PREDNISONE (PREDNISONE 5MG TAB) [Suspect]
     Active Substance: PREDNISONE
     Indication: RHEUMATOID ARTHRITIS
     Dates: start: 20201107, end: 20201113

REACTIONS (10)
  - Confusional state [None]
  - Hallucination [None]
  - Drug ineffective [None]
  - Suicidal ideation [None]
  - Peripheral swelling [None]
  - Mental status changes [None]
  - Inflammation [None]
  - Feeling abnormal [None]
  - Insomnia [None]
  - Refusal of treatment by relative [None]

NARRATIVE: CASE EVENT DATE: 20201108
